FAERS Safety Report 14980180 (Version 1)
Quarter: 2018Q2

REPORT INFORMATION
  Report Type: Spontaneous
  Country: GB (occurrence: GB)
  Receive Date: 20180606
  Receipt Date: 20180606
  Transmission Date: 20180711
  Serious: Yes (Other)
  Sender: FDA-Public Use
  Company Number: GB-BAUSCH-BL-2018-015991

PATIENT
  Age: 66 Year
  Sex: Female

DRUGS (3)
  1. DEXAMETHASONE. [Suspect]
     Active Substance: DEXAMETHASONE
     Indication: PLASMA CELL MYELOMA
     Dosage: 1 (UNITS UNSPECIFIED)?WEEKLY
     Route: 065
  2. VELCADE [Suspect]
     Active Substance: BORTEZOMIB
     Indication: PLASMA CELL MYELOMA
     Dosage: DOSAGE FORM: LYOPHILIZED POWDER?WEEKLY
     Route: 058
  3. VELCADE [Suspect]
     Active Substance: BORTEZOMIB
     Dosage: DOSAGE FORM: LYOPHILIZED POWDER, REDUCED DOSE?WEEKLY
     Route: 058

REACTIONS (3)
  - Neuropathy peripheral [Unknown]
  - Platelet count decreased [Recovering/Resolving]
  - Neutropenia [Recovering/Resolving]
